FAERS Safety Report 10366453 (Version 5)
Quarter: 2014Q4

REPORT INFORMATION
  Report Type: Report from Study
  Country: BR (occurrence: BR)
  Receive Date: 20140806
  Receipt Date: 20141119
  Transmission Date: 20150528
  Serious: Yes (Hospitalization)
  Sender: FDA-Public Use
  Company Number: BR-ROCHE-1444370

PATIENT
  Age: 72 Year
  Sex: Female

DRUGS (21)
  1. PERTUZUMAB [Suspect]
     Active Substance: PERTUZUMAB
     Dosage: MAINTAINANCE DOSE
     Route: 042
     Dates: start: 20140702
  2. FENTANYL TRANSDERMAL [Concomitant]
     Dosage: EACH 3 DAYS
     Route: 062
     Dates: start: 20140610, end: 20140701
  3. MIRTAZAPINE. [Concomitant]
     Active Substance: MIRTAZAPINE
     Route: 065
     Dates: start: 20140610
  4. PERTUZUMAB [Suspect]
     Active Substance: PERTUZUMAB
     Indication: HER-2 POSITIVE BREAST CANCER
     Dosage: LOADING DOSE?DATE OF LAST DOSE PRIOR TO SAE: 22/JUL/2014
     Route: 042
     Dates: start: 20140610
  5. LOSARTAN [Concomitant]
     Active Substance: LOSARTAN
     Route: 065
     Dates: start: 198212
  6. DIPYRONE [Concomitant]
     Active Substance: DIPYRONE
     Route: 065
     Dates: start: 20140604
  7. AMPHOTERICIN B/TETRACYCLINE [Concomitant]
     Dosage: 1X/DAY
     Route: 065
     Dates: start: 20140710, end: 20140716
  8. NORFLOXACIN [Concomitant]
     Active Substance: NORFLOXACIN
     Route: 065
     Dates: start: 20140630, end: 20140706
  9. CETRIMIDE [Concomitant]
     Active Substance: CETRIMIDE\LIDOCAINE
     Dosage: 3X/DAY
     Route: 065
     Dates: start: 20140712
  10. SUCRALFATE. [Concomitant]
     Active Substance: SUCRALFATE
     Indication: PROPHYLAXIS
     Route: 065
     Dates: start: 20140701
  11. NYSTATIN SOLUTION [Concomitant]
     Dosage: 3X/DAY
     Route: 048
     Dates: start: 20140710
  12. TRASTUZUMAB [Suspect]
     Active Substance: TRASTUZUMAB
     Indication: HER-2 POSITIVE BREAST CANCER
     Dosage: LOADING DOSE?DATE OF LAST DOSE PRIOR TO SAE: 22/JUL/2014
     Route: 042
     Dates: start: 20140611
  13. TRASTUZUMAB [Suspect]
     Active Substance: TRASTUZUMAB
     Dosage: MAINTAINANCE DOSE
     Route: 042
     Dates: start: 20140703
  14. ATORVASTATIN [Concomitant]
     Active Substance: ATORVASTATIN
     Route: 065
     Dates: start: 1982
  15. FENTANYL TRANSDERMAL [Concomitant]
     Dosage: EACH 3 DAYS
     Route: 065
     Dates: start: 20140702
  16. ONDANSETRON [Concomitant]
     Active Substance: ONDANSETRON
     Indication: NAUSEA
     Route: 065
     Dates: start: 20140610
  17. PACLITAXEL. [Suspect]
     Active Substance: PACLITAXEL
     Indication: HER-2 POSITIVE BREAST CANCER
     Dosage: DATE OF LAST DOSE PRIOR TO SAE: 22/JUL/2014
     Route: 042
     Dates: start: 20140611, end: 20140729
  18. MORPHINE [Concomitant]
     Active Substance: MORPHINE
     Route: 065
     Dates: start: 20140603
  19. LIPLESS [Concomitant]
     Active Substance: CIPROFIBRATE
     Route: 065
     Dates: start: 201401
  20. LORATADINE. [Concomitant]
     Active Substance: LORATADINE
     Route: 065
     Dates: start: 20140607, end: 20140609
  21. SUCRALFATE. [Concomitant]
     Active Substance: SUCRALFATE
     Indication: DYSPEPSIA
     Route: 065
     Dates: start: 20140710

REACTIONS (1)
  - Cystitis haemorrhagic [Recovered/Resolved]

NARRATIVE: CASE EVENT DATE: 20140730
